FAERS Safety Report 7283581-2 (Version None)
Quarter: 2011Q1

REPORT INFORMATION
  Report Type: 
  Country: None (occurrence: None)
  Receive Date: 20110209
  Receipt Date: 20110201
  Transmission Date: 20110831
  Serious: Yes (Hospitalization)
  Sender: FDA-Public Use
  Company Number: A0909208A

PATIENT
  Age: 72 Year
  Sex: Female

DRUGS (1)
  1. RYTHMOL [Suspect]
     Dosage: 325MG UNKNOWN
     Route: 048

REACTIONS (1)
  - ADVERSE EVENT [None]
